FAERS Safety Report 23876814 (Version 1)
Quarter: 2024Q2

REPORT INFORMATION
  Report Type: Spontaneous
  Country: CN (occurrence: None)
  Receive Date: 20240521
  Receipt Date: 20240521
  Transmission Date: 20240716
  Serious: Yes (Other)
  Sender: FDA-Public Use
  Company Number: CN-ROCHE-3565165

PATIENT
  Sex: Male

DRUGS (2)
  1. MABTHERA [Suspect]
     Active Substance: RITUXIMAB
     Indication: Proteinuria
     Dosage: PUMP INJECTION
     Route: 042
     Dates: start: 20240508
  2. MABTHERA [Suspect]
     Active Substance: RITUXIMAB
     Indication: Proteinuria
     Route: 065

REACTIONS (4)
  - Rash [Recovering/Resolving]
  - Septic shock [Unknown]
  - Pneumonia [Unknown]
  - Off label use [Unknown]

NARRATIVE: CASE EVENT DATE: 20240508
